FAERS Safety Report 21198302 (Version 2)
Quarter: 2022Q4

REPORT INFORMATION
  Report Type: Spontaneous
  Country: BE (occurrence: BE)
  Receive Date: 20220811
  Receipt Date: 20221020
  Transmission Date: 20230113
  Serious: Yes (Other)
  Sender: FDA-Public Use
  Company Number: BE-CELGENE-013-20785-10090612

PATIENT
  Sex: Female

DRUGS (1)
  1. THALIDOMIDE [Suspect]
     Active Substance: THALIDOMIDE
     Indication: Product used for unknown indication
     Route: 050
     Dates: end: 201010

REACTIONS (3)
  - Exposure via body fluid [Unknown]
  - Pregnancy on oral contraceptive [Unknown]
  - Live birth [Unknown]
